FAERS Safety Report 9803009 (Version 2)
Quarter: 2014Q3

REPORT INFORMATION
  Report Type: Spontaneous
  Country: US (occurrence: US)
  Receive Date: 20140108
  Receipt Date: 20140812
  Transmission Date: 20150326
  Serious: Yes (Hospitalization, Other)
  Sender: FDA-Public Use
  Company Number: US-009507513-1401USA002030

PATIENT
  Age: 30 Year
  Sex: Female
  Weight: 181.86 kg

DRUGS (1)
  1. NUVARING [Suspect]
     Active Substance: ETHINYL ESTRADIOL\ETONOGESTREL
     Indication: MENSTRUATION IRREGULAR
     Dosage: UNK
     Route: 067
     Dates: start: 200807

REACTIONS (6)
  - Off label use [Unknown]
  - Acute coronary syndrome [Unknown]
  - Gastroenteritis [Unknown]
  - Pericarditis [Unknown]
  - Pulmonary embolism [Unknown]
  - Stress [Unknown]

NARRATIVE: CASE EVENT DATE: 200807
